FAERS Safety Report 9963088 (Version 2)
Quarter: 2014Q2

REPORT INFORMATION
  Report Type: Report from Study
  Country: US (occurrence: US)
  Receive Date: 20140305
  Receipt Date: 20140410
  Transmission Date: 20141212
  Serious: Yes (Other)
  Sender: FDA-Public Use
  Company Number: US-GLAXOSMITHKLINE-A0895295B

PATIENT
  Age: 41 Year
  Sex: Female
  Weight: 70.5 kg

DRUGS (1)
  1. LYMPHOSTAT-B [Suspect]
     Indication: SYSTEMIC LUPUS ERYTHEMATOSUS
     Route: 042
     Dates: start: 20031104

REACTIONS (1)
  - Lung neoplasm malignant [Unknown]
